FAERS Safety Report 9708675 (Version 2)
Quarter: 2013Q4

REPORT INFORMATION
  Report Type: Spontaneous
  Country: JP (occurrence: None)
  Receive Date: 20131121
  Receipt Date: 20131223
  Transmission Date: 20140711
  Serious: Yes (Other)
  Sender: FDA-Public Use
  Company Number: SP07244

PATIENT
  Age: 82 Year
  Sex: Female

DRUGS (1)
  1. MOVIPREP [Suspect]
     Indication: BOWEL PREPARATION
     Route: 048
     Dates: start: 20131031, end: 20131031

REACTIONS (8)
  - Syncope [None]
  - Depressed level of consciousness [None]
  - Sense of oppression [None]
  - Urinary incontinence [None]
  - Vomiting [None]
  - Bradycardia [None]
  - Neurogenic shock [None]
  - Anxiety [None]
